FAERS Safety Report 4488295-X (Version None)
Quarter: 2004Q4

REPORT INFORMATION
  Report Type: 
  Country: None (occurrence: None)
  Receive Date: 20041026
  Receipt Date: 20041012
  Transmission Date: 20050328
  Serious: Yes (Hospitalization)
  Sender: FDA-Public Use
  Company Number: MK200410-0111-1

PATIENT
  Age: 79 Year
  Sex: Male

DRUGS (4)
  1. OPTIRAY 320 [Suspect]
     Dates: start: 20041008, end: 20041008
  2. GLIPIZIDE [Concomitant]
  3. PIOGLITAZONE HCL [Concomitant]
  4. DARVOCET [Concomitant]

REACTIONS (5)
  - DERMATITIS BULLOUS [None]
  - GENITAL DISORDER MALE [None]
  - PURPURA [None]
  - RASH ERYTHEMATOUS [None]
  - SKIN DESQUAMATION [None]
